FAERS Safety Report 9465608 (Version 4)
Quarter: 2013Q4

REPORT INFORMATION
  Report Type: Report from Study
  Country: GR (occurrence: GR)
  Receive Date: 20130820
  Receipt Date: 20131115
  Transmission Date: 20140711
  Serious: Yes (Life-Threatening, Hospitalization)
  Sender: FDA-Public Use
  Company Number: GR-AMGEN-GRCCT2013058367

PATIENT
  Age: 55 Year
  Sex: Female

DRUGS (6)
  1. DARBEPOETIN ALFA [Suspect]
     Indication: NEPHROGENIC ANAEMIA
     Dosage: 50 MUG, UNK
     Route: 042
     Dates: start: 20101202
  2. DARBEPOETIN ALFA [Suspect]
     Dosage: UNK
  3. AMLODIPINE [Concomitant]
     Dosage: 5 MG, UNK
     Dates: start: 20101215
  4. SEVELAMER [Concomitant]
     Dosage: 9600 MG, UNK
     Dates: start: 20040915
  5. RANITIDINE [Concomitant]
     Dosage: 150 MG, UNK
     Dates: start: 20130115
  6. TINZAPARIN [Concomitant]
     Dosage: UNK
     Dates: start: 20120512

REACTIONS (2)
  - Angina pectoris [Recovered/Resolved with Sequelae]
  - Acute myocardial infarction [Recovered/Resolved]
